FAERS Safety Report 6833810-1 (Version None)
Quarter: 2010Q3

REPORT INFORMATION
  Report Type: 
  Country: None (occurrence: None)
  Receive Date: 20100712
  Receipt Date: 20070418
  Transmission Date: 20110219
  Serious: Yes (Other)
  Sender: FDA-Public Use
  Company Number: US-PFIZER INC-2007026674

PATIENT
  Age: 36 Year
  Sex: Female

DRUGS (9)
  1. CHANTIX [Suspect]
     Indication: SMOKING CESSATION THERAPY
     Dates: start: 20070222, end: 20070301
  2. XANAX [Suspect]
     Indication: ANXIETY
     Dosage: AS NEEDED
     Dates: start: 20060101
  3. TRAZODONE [Concomitant]
     Indication: DEPRESSION
     Dosage: AS NEEDED
  4. PAXIL [Concomitant]
     Indication: DEPRESSION
     Dosage: AS NEEDED
     Dates: start: 20060101
  5. ADVAIR DISKUS 100/50 [Concomitant]
  6. MONTELUKAST [Concomitant]
  7. ALBUTEROL [Concomitant]
     Route: 055
  8. ALLEGRA [Concomitant]
  9. FLONASE [Concomitant]

REACTIONS (2)
  - ANXIETY [None]
  - DEPRESSION [None]
